FAERS Safety Report 12790951 (Version 2)
Quarter: 2016Q4

REPORT INFORMATION
  Report Type: Spontaneous
  Country: US (occurrence: US)
  Receive Date: 20160929
  Receipt Date: 20161108
  Transmission Date: 20170207
  Serious: No
  Sender: FDA-Public Use
  Company Number: US-PFIZER INC-2016433922

PATIENT
  Age: 79 Year
  Sex: Female
  Weight: 79 kg

DRUGS (4)
  1. MELATONIN [Concomitant]
     Active Substance: MELATONIN
     Indication: INSOMNIA
     Dosage: 3 MG, UNK
     Route: 048
  2. ADVIL PM [Suspect]
     Active Substance: DIPHENHYDRAMINE CITRATE\IBUPROFEN
     Indication: INSOMNIA
     Dosage: 200 MG, 1X/DAY (200 MG, 1 ABOUT 5AM IN THE MORNING)
     Route: 048
     Dates: start: 201609
  3. MELATONIN [Concomitant]
     Active Substance: MELATONIN
     Dosage: 5 MG, DAILY (AT BEDTIME)
     Route: 048
     Dates: start: 2006
  4. ZOLPIDEM [Concomitant]
     Active Substance: ZOLPIDEM\ZOLPIDEM TARTRATE
     Indication: INSOMNIA
     Dosage: 10 MG, 1X/DAY (10 MG PILL ONE PER NIGHT)
     Route: 048
     Dates: start: 2006

REACTIONS (1)
  - Drug ineffective for unapproved indication [Not Recovered/Not Resolved]

NARRATIVE: CASE EVENT DATE: 20160910
